FAERS Safety Report 6460007-X (Version None)
Quarter: 2009Q4

REPORT INFORMATION
  Report Type: 
  Country: None (occurrence: None)
  Receive Date: 20091129
  Receipt Date: 20091117
  Transmission Date: 20100525
  Serious: Yes (Hospitalization)
  Sender: FDA-Public Use
  Company Number: PHHY2009JP45721

PATIENT
  Age: 50 Year
  Sex: Female

DRUGS (2)
  1. NEORAL [Suspect]
     Indication: PYODERMA GANGRENOSUM
     Dosage: 200 MG/DAY
  2. PREDONINE [Concomitant]
     Dosage: 10 MG/DAY
     Route: 048

REACTIONS (4)
  - MYCOBACTERIUM FORTUITUM INFECTION [None]
  - NEOPLASM SKIN [None]
  - NODULE ON EXTREMITY [None]
  - SUBCUTANEOUS ABSCESS [None]
